FAERS Safety Report 10301647 (Version 2)
Quarter: 2014Q3

REPORT INFORMATION
  Report Type: Spontaneous
  Country: US (occurrence: US)
  Receive Date: 20140714
  Receipt Date: 20140806
  Transmission Date: 20150326
  Serious: Yes (Death, Other)
  Sender: FDA-Public Use
  Company Number: US-PFIZER INC-2014194142

PATIENT
  Age: 64 Year
  Sex: Male

DRUGS (6)
  1. CLOPIDOGREL [Suspect]
     Active Substance: CLOPIDOGREL BISULFATE
     Dosage: 600 MG, UNK (LOADING DOSE)
  2. EPTIFIBATIDE [Concomitant]
     Active Substance: EPTIFIBATIDE
  3. NOVASTAN [Concomitant]
     Active Substance: ARGATROBAN
     Indication: THROMBOSIS
     Dosage: UNK
     Route: 051
  4. ASPIRIN. [Concomitant]
     Active Substance: ASPIRIN
     Dosage: 325 MG, UNK
  5. NITROGLYCERIN. [Concomitant]
     Active Substance: NITROGLYCERIN
     Dosage: UNK
  6. HEPARIN [Concomitant]
     Active Substance: HEPARIN SODIUM
     Dosage: UNK
     Route: 042

REACTIONS (1)
  - Disseminated intravascular coagulation [Fatal]
